FAERS Safety Report 11160496 (Version 1)
Quarter: 2015Q2

REPORT INFORMATION
  Report Type: Spontaneous
  Country: US (occurrence: US)
  Receive Date: 20150604
  Receipt Date: 20150604
  Transmission Date: 20150821
  Serious: No
  Sender: FDA-Public Use
  Company Number: US-SA-2014SA060264

PATIENT
  Age: 76 Year
  Sex: Female
  Weight: 106.5 kg

DRUGS (7)
  1. PENICILLIN NOS [Concomitant]
     Active Substance: PENICILLIN
  2. LANTUS SOLOSTAR [Suspect]
     Active Substance: INSULIN GLARGINE
     Indication: TYPE 2 DIABETES MELLITUS
     Dosage: DOSE:75 UNIT(S)
     Route: 065
     Dates: start: 2012
  3. CODEINE [Concomitant]
     Active Substance: CODEINE
  4. SOLOSTAR [Concomitant]
     Active Substance: DEVICE
     Indication: TYPE 2 DIABETES MELLITUS
  5. SULFADIAZINE. [Concomitant]
     Active Substance: SULFADIAZINE
  6. LANTUS SOLOSTAR [Suspect]
     Active Substance: INSULIN GLARGINE
     Indication: TYPE 2 DIABETES MELLITUS
     Dosage: DOSE:60 UNIT(S)
     Route: 065
  7. SOLOSTAR [Concomitant]
     Active Substance: DEVICE
     Indication: TYPE 2 DIABETES MELLITUS
     Dates: start: 2012

REACTIONS (4)
  - Pruritus [Unknown]
  - Injection site discolouration [Unknown]
  - Blood glucose decreased [Unknown]
  - Injection site pain [Unknown]
